FAERS Safety Report 7600060-0 (Version None)
Quarter: 2011Q2

REPORT INFORMATION
  Report Type: 
  Country: None (occurrence: None)
  Receive Date: 20110629
  Receipt Date: 20110616
  Transmission Date: 20111010
  Serious: Yes (Hospitalization)
  Sender: FDA-Public Use
  Company Number: 2011MA007658

PATIENT
  Age: 28 Year
  Sex: Female

DRUGS (2)
  1. ALPRAZOLAM [Concomitant]
  2. BUPROPION HCL [Suspect]
     Indication: DEPRESSION
     Dosage: 300 MG;QD;UNK

REACTIONS (4)
  - SLEEP DISORDER [None]
  - PSYCHOMOTOR RETARDATION [None]
  - HALLUCINATION, VISUAL [None]
  - DELIRIUM [None]
